FAERS Safety Report 5010272-0 (Version None)
Quarter: 2006Q2

REPORT INFORMATION
  Report Type: 
  Country: None (occurrence: None)
  Receive Date: 20060404
  Receipt Date: 20051221
  Transmission Date: 20061013
  Serious: Yes (Hospitalization, Other)
  Sender: FDA-Public Use
  Company Number: US200512001237

PATIENT
  Age: 62 Year
  Sex: Male

DRUGS (10)
  1. CYMBALTA [Suspect]
     Indication: DEPRESSION
     Dosage: 30 MG, DAILY (1/D)
     Dates: start: 20051202
  2. FENTANYL [Concomitant]
  3. VALIUM /NET/ (PREDNISOLONE) [Concomitant]
  4. AZATHIOPRINE SODIUM (AZATHIOPRINE SODIUM) [Concomitant]
  5. THEOPHYSSLINE (THEOPHYLLINE) [Concomitant]
  6. UROXATRAL [Concomitant]
  7. NEXIUM /UNK/ (ESOMEPRAZOLE) [Concomitant]
  8. TRAZODONE HCL [Concomitant]
  9. SPIRIVA [Concomitant]
  10. XOPENEX [Concomitant]

REACTIONS (5)
  - ANOREXIA [None]
  - DEPRESSION [None]
  - FATIGUE [None]
  - HYPERSOMNIA [None]
  - SYNCOPE [None]
